FAERS Safety Report 9638425 (Version 1)
Quarter: 2013Q4

REPORT INFORMATION
  Report Type: Spontaneous
  Country: GB (occurrence: GB)
  Receive Date: 20131022
  Receipt Date: 20131022
  Transmission Date: 20140711
  Serious: Yes (Hospitalization, Other)
  Sender: FDA-Public Use
  Company Number: GB-PFIZER INC-2013300878

PATIENT
  Age: 69 Year
  Sex: Male

DRUGS (8)
  1. RAMIPRIL [Suspect]
     Dosage: UNK
     Route: 065
  2. CIPROFLOXACIN [Suspect]
     Indication: URINARY TRACT INFECTION
     Dosage: 500 MG, 2X/DAY
     Route: 065
     Dates: start: 20120405
  3. TRIMETHOPRIM [Suspect]
     Indication: URINARY TRACT INFECTION
     Dosage: 200 MG, 2X/DAY
     Route: 065
     Dates: start: 20120401, end: 20120405
  4. WARFARIN SODIUM [Suspect]
     Dosage: UNK
     Route: 065
  5. DIGOXIN [Suspect]
     Indication: ATRIAL FIBRILLATION
     Dosage: 250 UG, 1X/DAY
     Route: 065
     Dates: start: 20120409, end: 20120413
  6. ATORVASTATIN [Concomitant]
     Dosage: UNK
     Route: 065
  7. FINASTERIDE [Concomitant]
     Dosage: UNK
     Route: 065
  8. ATENOLOL [Concomitant]
     Dosage: UNK
     Route: 065

REACTIONS (7)
  - International normalised ratio increased [Recovered/Resolved]
  - Renal failure acute [Recovered/Resolved]
  - Nausea [Unknown]
  - Vomiting [Unknown]
  - Toxicity to various agents [Recovered/Resolved]
  - Urinary tract infection [Unknown]
  - Atrial fibrillation [Unknown]
